FAERS Safety Report 6659781-9 (Version None)
Quarter: 2010Q1

REPORT INFORMATION
  Report Type: 
  Country: None (occurrence: None)
  Receive Date: 20100330
  Receipt Date: 20100324
  Transmission Date: 20100710
  Serious: Yes (Hospitalization)
  Sender: FDA-Public Use
  Company Number: US-GILEAD-2010-0028107

PATIENT
  Sex: Female
  Weight: 92.3 kg

DRUGS (10)
  1. LETAIRIS [Suspect]
     Indication: PULMONARY ARTERIAL HYPERTENSION
     Route: 048
     Dates: start: 20080903
  2. REVATIO [Concomitant]
  3. DILTIAZEM HCL [Concomitant]
  4. LASIX [Concomitant]
  5. PREDNISONE [Concomitant]
  6. AZITHROMYCIN [Concomitant]
  7. PREVACID [Concomitant]
  8. MUCINEX [Concomitant]
  9. K-DUR [Concomitant]
  10. FERROUS SULFATE TAB [Concomitant]

REACTIONS (4)
  - BRONCHITIS [None]
  - DIZZINESS [None]
  - DYSPHAGIA [None]
  - DYSPNOEA [None]
